FAERS Safety Report 10066597 (Version 1)
Quarter: 2014Q2

REPORT INFORMATION
  Report Type: Spontaneous
  Country: US (occurrence: US)
  Receive Date: 20140408
  Receipt Date: 20140408
  Transmission Date: 20141212
  Serious: Yes (Other)
  Sender: FDA-Public Use
  Company Number: CHPA2014US005010

PATIENT
  Sex: Male

DRUGS (1)
  1. EX-LAX LAXATIVE UNKNOWN FORMULA [Suspect]
     Route: 048

REACTIONS (1)
  - Drug dependence [Unknown]
